FAERS Safety Report 13348773 (Version 4)
Quarter: 2017Q3

REPORT INFORMATION
  Report Type: Report from Study
  Country: US (occurrence: US)
  Receive Date: 20170320
  Receipt Date: 20170803
  Transmission Date: 20171127
  Serious: No
  Sender: FDA-Public Use
  Company Number: PHEH2017US007873

PATIENT
  Sex: Male

DRUGS (1)
  1. AFINITOR [Suspect]
     Active Substance: EVEROLIMUS
     Indication: ASTROCYTOMA, LOW GRADE
     Dosage: 7.5 MG, QD
     Route: 048
     Dates: start: 20140716

REACTIONS (6)
  - Stomatitis [Recovered/Resolved]
  - Rash [Unknown]
  - Gingival ulceration [Unknown]
  - Nasopharyngitis [Unknown]
  - Mouth ulceration [Unknown]
  - Lip ulceration [Unknown]
